FAERS Safety Report 23104890 (Version 1)
Quarter: 2023Q4

REPORT INFORMATION
  Report Type: Spontaneous
  Country: US (occurrence: None)
  Receive Date: 20231024
  Receipt Date: 20231024
  Transmission Date: 20240110
  Serious: Yes (Hospitalization, Disabling)
  Sender: FDA-Public Use
  Company Number: None

PATIENT
  Age: 37 Year
  Sex: Female
  Weight: 79.38 kg

DRUGS (1)
  1. MIRENA [Suspect]
     Active Substance: LEVONORGESTREL

REACTIONS (11)
  - Palpitations [None]
  - Hypertension [None]
  - Headache [None]
  - Back pain [None]
  - Cystitis [None]
  - Ovarian cyst ruptured [None]
  - Dyspnoea [None]
  - Menstrual disorder [None]
  - Complication of device removal [None]
  - Anxiety [None]
  - Insomnia [None]

NARRATIVE: CASE EVENT DATE: 20230815
